FAERS Safety Report 12655203 (Version 4)
Quarter: 2016Q3

REPORT INFORMATION
  Report Type: Report from Study
  Country: US (occurrence: US)
  Receive Date: 20160816
  Receipt Date: 20160912
  Transmission Date: 20161109
  Serious: Yes (Hospitalization, Disabling, Other)
  Sender: FDA-Public Use
  Company Number: US-GILEAD-2016-0227825

PATIENT
  Age: 89 Year
  Sex: Female
  Weight: 57.6 kg

DRUGS (10)
  1. AMBRISENTAN [Suspect]
     Active Substance: AMBRISENTAN
     Indication: EMBOLISM
     Dosage: 10 MG, QD
     Route: 065
     Dates: start: 20120423
  2. ALENDRONATE SODIUM. [Concomitant]
     Active Substance: ALENDRONATE SODIUM
  3. VESICARE [Concomitant]
     Active Substance: SOLIFENACIN SUCCINATE
  4. ASPIRIN                            /00002701/ [Concomitant]
     Active Substance: ASPIRIN
  5. FUROSEMIDE. [Concomitant]
     Active Substance: FUROSEMIDE
  6. AMBRISENTAN [Suspect]
     Active Substance: AMBRISENTAN
     Indication: PULMONARY HYPERTENSION
  7. ADEMPAS [Concomitant]
     Active Substance: RIOCIGUAT
  8. GABAPENTIN. [Concomitant]
     Active Substance: GABAPENTIN
  9. FAMOTIDINE. [Concomitant]
     Active Substance: FAMOTIDINE
  10. SIMVASTATIN. [Concomitant]
     Active Substance: SIMVASTATIN

REACTIONS (5)
  - Dyspnoea [Recovered/Resolved]
  - Sarcoma metastatic [Not Recovered/Not Resolved]
  - Syncope [Recovered/Resolved]
  - Peripheral swelling [Recovered/Resolved]
  - Memory impairment [Not Recovered/Not Resolved]

NARRATIVE: CASE EVENT DATE: 20160301
